FAERS Safety Report 18482011 (Version 1)
Quarter: 2020Q4

REPORT INFORMATION
  Report Type: Spontaneous
  Country: US (occurrence: US)
  Receive Date: 20201109
  Receipt Date: 20201109
  Transmission Date: 20210114
  Serious: No
  Sender: FDA-Public Use
  Company Number: US-SA-2020SA309661

PATIENT

DRUGS (1)
  1. LANTUS SOLOSTAR [Suspect]
     Active Substance: INSULIN GLARGINE
     Indication: DIABETES MELLITUS
     Dosage: 25 IU, HS
     Route: 065

REACTIONS (4)
  - Prostatomegaly [Unknown]
  - Pollakiuria [Unknown]
  - Drug ineffective [Unknown]
  - Product storage error [Unknown]
